FAERS Safety Report 10215673 (Version 1)
Quarter: 2014Q2

REPORT INFORMATION
  Report Type: Spontaneous
  Country: US (occurrence: US)
  Receive Date: 20140604
  Receipt Date: 20140604
  Transmission Date: 20141212
  Serious: Yes (Other)
  Sender: FDA-Public Use
  Company Number: US-SHIRE-US201402556

PATIENT
  Sex: Female
  Weight: 58.96 kg

DRUGS (4)
  1. ADDERALL XR [Suspect]
     Indication: ATTENTION DEFICIT/HYPERACTIVITY DISORDER
     Dosage: 40 MG (TWO 20 MG CAPSULES) 1X/DAY:QD
     Route: 048
     Dates: start: 2003, end: 2003
  2. ADDERALL XR [Suspect]
     Dosage: 40 MG,(TWO 20 MG CAPSULES) 1X/DAY:QD
     Route: 048
     Dates: start: 2003, end: 2009
  3. ADDERALL XR [Suspect]
     Dosage: 40 MG,(TWO 20 MG CAPSULES) 1X/DAY:QD
     Route: 048
  4. MINASTRIN 24 FE [Concomitant]
     Indication: CONTRACEPTION
     Dosage: UNK (1MG/20MCG), 1X/DAY:QD
     Route: 065

REACTIONS (2)
  - Benign breast neoplasm [Recovered/Resolved]
  - Prescribed overdose [Not Recovered/Not Resolved]
